FAERS Safety Report 24634234 (Version 1)
Quarter: 2024Q4

REPORT INFORMATION
  Report Type: Spontaneous
  Country: US (occurrence: US)
  Receive Date: 20241119
  Receipt Date: 20241119
  Transmission Date: 20250114
  Serious: Yes (Death)
  Sender: Kenvue
  Company Number: US-KENVUE-20241102791

PATIENT
  Age: 7 Month
  Sex: Female

DRUGS (1)
  1. BENADRYL [Suspect]
     Active Substance: DIPHENHYDRAMINE HYDROCHLORIDE
     Indication: Insomnia
     Route: 065

REACTIONS (2)
  - Intentional product misuse to child [Fatal]
  - Intentional overdose [Fatal]
